FAERS Safety Report 18192234 (Version 1)
Quarter: 2020Q3

REPORT INFORMATION
  Report Type: Spontaneous
  Country: US (occurrence: US)
  Receive Date: 20200825
  Receipt Date: 20200825
  Transmission Date: 20201103
  Serious: No
  Sender: FDA-Public Use
  Company Number: US-PFIZER INC-2020326890

PATIENT
  Age: 46 Year
  Sex: Female

DRUGS (1)
  1. XELJANZ XR [Suspect]
     Active Substance: TOFACITINIB CITRATE
     Dosage: UNK
     Dates: start: 20200521

REACTIONS (9)
  - Product dose omission issue [Unknown]
  - Blister [Unknown]
  - Therapeutic product effect incomplete [Unknown]
  - Renal pain [Unknown]
  - Rash [Unknown]
  - Therapeutic response unexpected [Unknown]
  - Sunburn [Unknown]
  - Pre-existing condition improved [Unknown]
  - Urinary tract infection [Unknown]
